FAERS Safety Report 8001013-3 (Version None)
Quarter: 2011Q4

REPORT INFORMATION
  Report Type: 
  Country: None (occurrence: None)
  Receive Date: 20111222
  Receipt Date: 20110418
  Transmission Date: 20120403
  Serious: No
  Sender: FDA-Public Use
  Company Number: US-GLAXOSMITHKLINE-A0924024A

PATIENT
  Sex: Male

DRUGS (1)
  1. FLONASE [Suspect]
     Indication: PRODUCT USED FOR UNKNOWN INDICATION
     Route: 065

REACTIONS (3)
  - PHARYNGEAL DISORDER [None]
  - ABDOMINAL DISCOMFORT [None]
  - DRUG INEFFECTIVE [None]
